FAERS Safety Report 8012630-9 (Version None)
Quarter: 2011Q4

REPORT INFORMATION
  Report Type: 
  Country: None (occurrence: None)
  Receive Date: 20111229
  Receipt Date: 20111220
  Transmission Date: 20120403
  Serious: Yes (Other)
  Sender: FDA-Public Use
  Company Number: US-JNJFOC-20111209530

PATIENT
  Age: 44 Year
  Sex: Female
  Weight: 40.37 kg

DRUGS (4)
  1. ANTIHISTAMINE [Concomitant]
     Indication: PREMEDICATION
     Route: 048
  2. REMICADE [Suspect]
     Route: 042
     Dates: start: 20111031, end: 20111031
  3. REMICADE [Suspect]
     Indication: CROHN'S DISEASE
     Route: 042
  4. PREDNISONE TAB [Concomitant]
     Indication: PREMEDICATION
     Route: 065

REACTIONS (5)
  - DYSPNOEA [None]
  - MUSCLE RIGIDITY [None]
  - OXYGEN SATURATION DECREASED [None]
  - FLUSHING [None]
  - INFUSION RELATED REACTION [None]
